FAERS Safety Report 12841346 (Version 1)
Quarter: 2016Q4

REPORT INFORMATION
  Report Type: Report from Study
  Country: US (occurrence: US)
  Receive Date: 20161012
  Receipt Date: 20161012
  Transmission Date: 20170207
  Serious: Yes (Hospitalization)
  Sender: FDA-Public Use
  Company Number: PHEH2016US025531

PATIENT
  Age: 55 Year
  Sex: Female
  Weight: 85.4 kg

DRUGS (9)
  1. BUPROPION. [Concomitant]
     Active Substance: BUPROPION
     Indication: ANTIDEPRESSANT THERAPY
     Dosage: 300 MG, QD
     Route: 048
     Dates: start: 20160506
  2. HYDROCODONE BITARTRATE AND ACETAMINOPHEN [Concomitant]
     Active Substance: ACETAMINOPHEN\HYDROCODONE BITARTRATE
     Indication: PAIN
     Dosage: 10/325 MG
     Route: 048
     Dates: start: 20160506
  3. DICLOFENAC [Concomitant]
     Active Substance: DICLOFENAC
     Indication: PRURITUS
     Dosage: 4 DF, PRN
     Route: 061
     Dates: start: 20160506
  4. SANDOSTATIN LAR DEPOT [Suspect]
     Active Substance: OCTREOTIDE ACETATE
     Indication: NEOPLASM
     Dosage: 30 MG, QMO
     Route: 030
     Dates: start: 20160506
  5. PRILOCAINE [Concomitant]
     Active Substance: PRILOCAINE
     Indication: PRURITUS
     Dosage: 4 DF, 3 TO 4 PER DAY
     Route: 061
     Dates: start: 20160506
  6. DOCUSATE [Concomitant]
     Active Substance: DOCUSATE
     Indication: DIARRHOEA
     Dosage: 100 MG, QID
     Route: 048
     Dates: start: 20160506
  7. VITAMIN B12 [Concomitant]
     Active Substance: CYANOCOBALAMIN
     Indication: NUTRITIONAL SUPPLEMENTATION
     Dosage: 1000 MCG/ML, 2 PER MONTH
     Route: 030
     Dates: start: 20160506
  8. DIAZEPAM. [Concomitant]
     Active Substance: DIAZEPAM
     Indication: ANXIETY
     Dosage: 3 MG, QD
     Route: 048
     Dates: start: 20160506
  9. BACLOFEN. [Concomitant]
     Active Substance: BACLOFEN
     Indication: MUSCLE SPASMS
     Dosage: 10 MG, QD
     Route: 048
     Dates: start: 20160506

REACTIONS (3)
  - Intestinal obstruction [Recovered/Resolved with Sequelae]
  - Vomiting [Unknown]
  - Pain [Unknown]

NARRATIVE: CASE EVENT DATE: 20160815
